FAERS Safety Report 14620595 (Version 1)
Quarter: 2018Q1

REPORT INFORMATION
  Report Type: Spontaneous
  Country: None (occurrence: US)
  Receive Date: 20180309
  Receipt Date: 20180309
  Transmission Date: 20180509
  Serious: No
  Sender: FDA-Public Use
  Company Number: US-X-GEN PHARMACEUTICALS, INC-2043460

PATIENT
  Sex: Male

DRUGS (3)
  1. AMPHOTERICIN B. [Suspect]
     Active Substance: AMPHOTERICIN B
     Indication: PRODUCT USED FOR UNKNOWN INDICATION
     Route: 065
  2. MYCAMINE [Suspect]
     Active Substance: MICAFUNGIN SODIUM
     Route: 065
     Dates: start: 20171201
  3. AMIODARONE [Concomitant]
     Active Substance: AMIODARONE
     Route: 065

REACTIONS (4)
  - Candida infection [Unknown]
  - Fungal endocarditis [Unknown]
  - Drug resistance [Recovered/Resolved]
  - Palpitations [Unknown]
